FAERS Safety Report 6315906-6 (Version None)
Quarter: 2009Q3

REPORT INFORMATION
  Report Type: 
  Country: None (occurrence: None)
  Receive Date: 20090820
  Receipt Date: 20071102
  Transmission Date: 20100115
  Serious: Yes (Other)
  Sender: FDA-Public Use
  Company Number: US-ASTRAZENECA-2007UW19286

PATIENT
  Age: 13279 Day
  Sex: Female
  Weight: 122 kg

DRUGS (12)
  1. SEROQUEL [Suspect]
     Indication: BIPOLAR DISORDER
     Route: 048
     Dates: start: 20030101, end: 20070501
  2. SEROQUEL [Suspect]
     Route: 048
     Dates: start: 20050601
  3. TOPAMAX [Concomitant]
     Dates: start: 20070109
  4. LEXAPRO [Concomitant]
     Dates: start: 20070109
  5. ABILIFY [Concomitant]
     Dates: start: 20070109
  6. TRAZODONE HCL [Concomitant]
     Dates: start: 20070109
  7. XANAX [Concomitant]
     Indication: PANIC ATTACK
     Dates: start: 20031102
  8. XANAX [Concomitant]
     Indication: ANXIETY
     Dates: start: 20031102
  9. SYNTHROID [Concomitant]
     Indication: GOITRE
     Dates: start: 20031102
  10. SYNTHROID [Concomitant]
     Indication: HYPOTHYROIDISM
     Dates: start: 20031102
  11. ACETAMINOPHEN AND HYDROCODONE BITARTRATE [Concomitant]
     Dosage: STRENGTH - 5 - 500 MG, FOUR HRLY, AS NEEDED
     Route: 048
  12. RESTORIL [Concomitant]
     Dates: start: 20050601

REACTIONS (4)
  - DIABETIC NEUROPATHY [None]
  - HYPERGLYCAEMIA [None]
  - HYPOGLYCAEMIA [None]
  - TYPE 2 DIABETES MELLITUS [None]
